FAERS Safety Report 20460183 (Version 1)
Quarter: 2022Q1

REPORT INFORMATION
  Report Type: Report from Study
  Country: US (occurrence: US)
  Receive Date: 20220211
  Receipt Date: 20220211
  Transmission Date: 20220424
  Serious: Yes (Hospitalization, Other)
  Sender: FDA-Public Use
  Company Number: US-JAZZ-2021-US-009319

PATIENT
  Age: 5 Year
  Sex: Male
  Weight: 20.4 kg

DRUGS (24)
  1. ASPARAGINASE ERWINIA CHRYSANTHEMI [Suspect]
     Active Substance: ASPARAGINASE ERWINIA CHRYSANTHEMI
     Indication: Acute lymphocytic leukaemia
     Dosage: 25 MILLIGRAM/SQ. METER, 3XWEEKLY PER 2W COURSE
     Route: 042
     Dates: start: 20210517
  2. ASPARAGINASE ERWINIA CHRYSANTHEMI [Suspect]
     Active Substance: ASPARAGINASE ERWINIA CHRYSANTHEMI
     Dosage: 50 MILLIGRAM/SQ. METER,  3XWEEKLY PER 2W COURSE
     Route: 042
     Dates: end: 20210813
  3. ASPARAGINASE ERWINIA CHRYSANTHEMI [Suspect]
     Active Substance: ASPARAGINASE ERWINIA CHRYSANTHEMI
     Dosage: 25 MILLIGRAM/SQ. METER, 3XWEEKLY PER 2W COURSE
     Route: 042
     Dates: end: 20210825
  4. ZOFRAN ODT [Concomitant]
     Active Substance: ONDANSETRON HYDROCHLORIDE
     Dosage: 4 MILLIGRAM, SINGLE
     Route: 048
     Dates: start: 20210316
  5. ZOFRAN ODT [Concomitant]
     Active Substance: ONDANSETRON HYDROCHLORIDE
     Dosage: 4 UNK
     Route: 042
     Dates: start: 20210810, end: 20210810
  6. ONCOVIN [Concomitant]
     Active Substance: VINCRISTINE SULFATE
     Dosage: 1.2 MILLIGRAM, SINGLE
     Route: 042
     Dates: start: 20210517, end: 20210517
  7. ONCOVIN [Concomitant]
     Active Substance: VINCRISTINE SULFATE
     Dosage: 1.2 MILLIGRAM, SINGLE
     Route: 042
     Dates: start: 20210810, end: 20210810
  8. MERCAPTOPURINE [Concomitant]
     Active Substance: MERCAPTOPURINE
     Dosage: 46 MILLIGRAM, QD
     Route: 048
     Dates: start: 20210427, end: 20210512
  9. REGLAN [Concomitant]
     Active Substance: METOCLOPRAMIDE HYDROCHLORIDE
     Dosage: 6.5 MILLIGRAM, Q6H PRN
     Route: 048
     Dates: start: 20210226
  10. REGLAN [Concomitant]
     Active Substance: METOCLOPRAMIDE HYDROCHLORIDE
     Dosage: 6 MILLIGRAM, SINGLE
     Route: 042
     Dates: start: 20210813
  11. BENYLIN ADULT [DIPHENHYDRAMINE HYDROCHLORIDE] [Concomitant]
     Dosage: 20 MILLIGRAM, Q6H PRN WITH REGLAN
     Route: 048
     Dates: start: 20210226
  12. CETYLPYRIDINIUM CHLORIDE [Concomitant]
     Active Substance: CETYLPYRIDINIUM CHLORIDE
     Dosage: 5 MILLILITER, BID, SWISH AND SPIT
     Dates: start: 20210226
  13. MIRALAX [Concomitant]
     Active Substance: POLYETHYLENE GLYCOL 3350
     Dosage: 8.5 GRAM, BID PRN
     Route: 048
     Dates: start: 20210226
  14. SENNA LEAF [Concomitant]
     Active Substance: SENNA LEAF
     Dosage: 4.4 MILLIGRAM, BID PRN
     Route: 048
     Dates: start: 20210226
  15. SULFAMETHOXAZOLE AND TRIMETHOPRIM [Concomitant]
     Active Substance: SULFAMETHOXAZOLE\TRIMETHOPRIM
     Dosage: 56 MILLIGRAM, BID SA,SU
     Route: 048
     Dates: start: 20210206
  16. DIPRIVAN [Concomitant]
     Active Substance: PROPOFOL
     Dosage: 242.9 MILLIGRAM, SINGLE
     Route: 042
     Dates: start: 20210810, end: 20210810
  17. METHOTREXATE [Concomitant]
     Active Substance: METHOTREXATE
     Dosage: 12 MILLIGRAM, SINGLE
     Route: 037
     Dates: start: 20210810, end: 20210810
  18. ADRIAMYCIN [Concomitant]
     Active Substance: DOXORUBICIN HYDROCHLORIDE
     Dosage: 19.8 MILLIGRAM, SINGLE
     Route: 042
     Dates: start: 20210810, end: 20210810
  19. DECADRON [Concomitant]
     Active Substance: DEXAMETHASONE
     Dosage: 4 MILLIGRAM, BID
     Route: 048
     Dates: start: 20210810
  20. HEPARIN [Concomitant]
     Active Substance: HEPARIN SODIUM
     Dosage: 10 U, PRN
     Route: 042
     Dates: start: 20210204
  21. GABAPENTIN [Concomitant]
     Active Substance: GABAPENTIN
     Dosage: 100 MILLIGRAM, BID
     Route: 048
     Dates: start: 20210521
  22. DIPHENHYDRAMINE HYDROCHLORIDE\LIDOCAINE HYDROCHLORIDE\NYSTATIN [Concomitant]
     Active Substance: DIPHENHYDRAMINE HYDROCHLORIDE\LIDOCAINE HYDROCHLORIDE\NYSTATIN
     Dosage: 5ML/Q6H PRN/ SWISH AND SPIT
     Dates: start: 20210617
  23. DIPHENHYDRAMINE HYDROCHLORIDE [Concomitant]
     Active Substance: DIPHENHYDRAMINE HYDROCHLORIDE
     Dosage: 12.5 MILLIGRAM, SINGLE
     Route: 042
     Dates: start: 20210813, end: 20210815
  24. LIDOCAINE [Concomitant]
     Active Substance: LIDOCAINE
     Dosage: CREAM, 1 APPLY, PRN
     Route: 061
     Dates: start: 20210226

REACTIONS (6)
  - Hyperammonaemia [Recovered/Resolved]
  - Hyperammonaemia [Recovered/Resolved]
  - Vomiting [Recovered/Resolved]
  - Hyperammonaemia [Recovered/Resolved]
  - Hyperglycaemia [Recovered/Resolved]
  - Hyperglycaemia [Recovered/Resolved]

NARRATIVE: CASE EVENT DATE: 20210519
